FAERS Safety Report 5536729-1 (Version None)
Quarter: 2007Q4

REPORT INFORMATION
  Report Type: 
  Country: None (occurrence: None)
  Receive Date: 20071206
  Receipt Date: 20070507
  Transmission Date: 20080405
  Serious: Yes (Hospitalization)
  Sender: FDA-Public Use
  Company Number: US-AMGEN-STX219528

PATIENT
  Sex: Female
  Weight: 60.8 kg

DRUGS (5)
  1. ENBREL [Suspect]
     Indication: PSORIATIC ARTHROPATHY
     Route: 058
     Dates: start: 20060118, end: 20061201
  2. METHOTREXATE [Concomitant]
     Dates: start: 20050926, end: 20060301
  3. METHOTREXATE [Concomitant]
     Dates: start: 20060301, end: 20061201
  4. PRAVACHOL [Concomitant]
     Dates: end: 20061201
  5. FOLIC ACID [Concomitant]
     Dates: end: 20061201

REACTIONS (2)
  - BILE DUCT CANCER [None]
  - CARDIAC MURMUR [None]
